FAERS Safety Report 7302811-1 (Version None)
Quarter: 2011Q1

REPORT INFORMATION
  Report Type: 
  Country: None (occurrence: None)
  Receive Date: 20110218
  Receipt Date: 20101207
  Transmission Date: 20110831
  Serious: No
  Sender: FDA-Public Use
  Company Number: US-BAYER-2010-008588

PATIENT
  Sex: Male
  Weight: 76 kg

DRUGS (4)
  1. LOVASTATIN [Concomitant]
  2. MULTIVITAMIN [Concomitant]
  3. ASPIRIN [Concomitant]
  4. ALEVE (CAPLET) [Suspect]
     Indication: BACK PAIN

REACTIONS (1)
  - DRUG INEFFECTIVE [None]
